FAERS Safety Report 13941312 (Version 2)
Quarter: 2020Q3

REPORT INFORMATION
  Report Type: Report from Study
  Country: BE (occurrence: BE)
  Receive Date: 20170906
  Receipt Date: 20171005
  Transmission Date: 20201104
  Serious: Yes (Life-Threatening, Hospitalization)
  Sender: FDA-Public Use
  Company Number: BE-ASTRAZENECA-2017SE83337

PATIENT
  Age: 68 Year
  Sex: Male
  Weight: 76 kg

DRUGS (30)
  1. MEDI4736 [Suspect]
     Active Substance: DURVALUMAB
     Indication: SQUAMOUS CELL CARCINOMA OF HEAD AND NECK
     Route: 042
     Dates: start: 20170621, end: 20170621
  2. MEDI4736 [Suspect]
     Active Substance: DURVALUMAB
     Indication: SQUAMOUS CELL CARCINOMA OF HEAD AND NECK
     Route: 042
     Dates: start: 20170726, end: 20170726
  3. ELOCOM LIPO [Concomitant]
     Indication: ERYTHEMA MULTIFORME
     Dates: start: 20170719, end: 20170802
  4. BENERVA [Concomitant]
     Active Substance: THIAMINE HYDROCHLORIDE
     Indication: SQUAMOUS CELL CARCINOMA OF HEAD AND NECK
  5. SPIOLTO RESPIMAT [Concomitant]
     Active Substance: OLODATEROL HYDROCHLORIDE\TIOTROPIUM BROMIDE MONOHYDRATE
     Dates: start: 20170719
  6. BILASTINE [Concomitant]
     Active Substance: BILASTINE
     Indication: ERYTHEMA MULTIFORME
     Dates: start: 20170712, end: 20170718
  7. TREMELIMUMAB. [Suspect]
     Active Substance: TREMELIMUMAB
     Indication: SQUAMOUS CELL CARCINOMA OF HEAD AND NECK
     Route: 042
     Dates: start: 20170426, end: 20170426
  8. BURINEX [Concomitant]
     Active Substance: BUMETANIDE
     Indication: SQUAMOUS CELL CARCINOMA OF HEAD AND NECK
     Dates: start: 20161201
  9. COVERAM [Concomitant]
     Active Substance: AMLODIPINE\PERINDOPRIL
  10. TREMELIMUMAB. [Suspect]
     Active Substance: TREMELIMUMAB
     Indication: SQUAMOUS CELL CARCINOMA OF HEAD AND NECK
     Route: 042
     Dates: start: 20170726, end: 20170726
  11. ALDACTONE [Concomitant]
     Active Substance: SPIRONOLACTONE
     Dates: start: 20161107
  12. ELOCOM LIPO [Concomitant]
     Indication: ERYTHEMA MULTIFORME
     Dates: start: 20170802, end: 20170816
  13. DEXERYL (CHLORPHENAMINE MALEATE\DEXTROMETHORPHAN HYDROBROMIDE\GUAIFENESIN\PHENYLEPHRINE HYDROCHLORIDE) [Concomitant]
     Active Substance: CHLORPHENIRAMINE MALEATE\DEXTROMETHORPHAN HYDROBROMIDE\GUAIFENESIN\PHENYLEPHRINE HYDROCHLORIDE
     Indication: ERYTHEMA MULTIFORME
     Dates: start: 20170719
  14. OMIC [Concomitant]
     Dates: start: 20160816
  15. SYMBICORT [Concomitant]
     Active Substance: BUDESONIDE\FORMOTEROL FUMARATE DIHYDRATE
  16. MEDI4736 [Suspect]
     Active Substance: DURVALUMAB
     Indication: SQUAMOUS CELL CARCINOMA OF HEAD AND NECK
     Route: 042
     Dates: start: 20170426, end: 20170426
  17. MEDI4736 [Suspect]
     Active Substance: DURVALUMAB
     Indication: SQUAMOUS CELL CARCINOMA OF HEAD AND NECK
     Route: 042
     Dates: start: 20170524, end: 20170524
  18. TREMELIMUMAB. [Suspect]
     Active Substance: TREMELIMUMAB
     Indication: SQUAMOUS CELL CARCINOMA OF HEAD AND NECK
     Route: 042
     Dates: start: 20170524, end: 20170524
  19. TREMELIMUMAB. [Suspect]
     Active Substance: TREMELIMUMAB
     Indication: SQUAMOUS CELL CARCINOMA OF HEAD AND NECK
     Route: 042
     Dates: start: 20170621, end: 20170621
  20. PANTOMED (PANTOPRAZOLE SODIUM) [Concomitant]
     Active Substance: PANTOPRAZOLE SODIUM
     Indication: PROPHYLAXIS
     Dates: start: 20161124
  21. ASAFLOW [Concomitant]
     Active Substance: ASPIRIN
  22. CONTRAMAL [Concomitant]
     Active Substance: TRAMADOL HYDROCHLORIDE
     Indication: PROPHYLAXIS
     Dates: start: 20161207
  23. SPIRIVA [Concomitant]
     Active Substance: TIOTROPIUM BROMIDE MONOHYDRATE
  24. ELOCOM LIPO [Concomitant]
     Indication: ERYTHEMA MULTIFORME
     Dates: start: 20170816
  25. NOBITEN [Concomitant]
     Active Substance: NEBIVOLOL
  26. BILASTINE [Concomitant]
     Active Substance: BILASTINE
     Indication: ERYTHEMA MULTIFORME
     Dates: start: 20170726
  27. CLOPIDOGREL [Concomitant]
     Active Substance: CLOPIDOGREL BISULFATE
  28. INEGY [Concomitant]
     Active Substance: EZETIMIBE\SIMVASTATIN
  29. DUOVENT [Concomitant]
     Active Substance: FENOTEROL HYDROBROMIDE
     Dates: start: 20161124
  30. BILASTINE [Concomitant]
     Active Substance: BILASTINE
     Indication: ERYTHEMA MULTIFORME
     Dates: start: 20170719, end: 20170725

REACTIONS (2)
  - Adrenal insufficiency [Not Recovered/Not Resolved]
  - Pneumonia [Recovered/Resolved]

NARRATIVE: CASE EVENT DATE: 20170811
